FAERS Safety Report 23401835 (Version 1)
Quarter: 2024Q1

REPORT INFORMATION
  Report Type: Spontaneous
  Country: CN (occurrence: CN)
  Receive Date: 20240115
  Receipt Date: 20240115
  Transmission Date: 20240410
  Serious: Yes (Life-Threatening, Hospitalization, Other)
  Sender: FDA-Public Use
  Company Number: CN-PFIZER INC-PV202400001809

PATIENT
  Age: 73 Year
  Sex: Male

DRUGS (1)
  1. VORICONAZOLE [Suspect]
     Active Substance: VORICONAZOLE
     Indication: Candida infection
     Dosage: 200 MG, DAILY
     Route: 048

REACTIONS (13)
  - Myelodysplastic syndrome [Recovered/Resolved]
  - Hallucination [Unknown]
  - Visual impairment [Unknown]
  - Nausea [Unknown]
  - Vomiting [Unknown]
  - Hiccups [Unknown]
  - Abdominal pain lower [Unknown]
  - Abdominal pain [Unknown]
  - Altered state of consciousness [Unknown]
  - Slow response to stimuli [Unknown]
  - Ecchymosis [Unknown]
  - Delirium [Unknown]
  - Acute kidney injury [Recovering/Resolving]
